FAERS Safety Report 11005901 (Version 1)
Quarter: 2015Q2

REPORT INFORMATION
  Report Type: Spontaneous
  Country: None (occurrence: US)
  Receive Date: 20150409
  Receipt Date: 20150409
  Transmission Date: 20150821
  Serious: No
  Sender: FDA-Public Use
  Company Number: US-ALLERGAN-1502087US

PATIENT
  Age: 64 Year
  Sex: Female

DRUGS (2)
  1. ALPHAGAN P [Suspect]
     Active Substance: BRIMONIDINE TARTRATE
     Indication: PRODUCT USED FOR UNKNOWN INDICATION
     Dosage: UNKNOWN
  2. LUMIGAN [Suspect]
     Active Substance: BIMATOPROST
     Indication: PRODUCT USED FOR UNKNOWN INDICATION
     Dosage: UNKNOWN

REACTIONS (4)
  - Sensory disturbance [Recovered/Resolved]
  - Paraesthesia [Recovered/Resolved]
  - Paraesthesia oral [Recovered/Resolved]
  - Palpitations [Recovered/Resolved]
